FAERS Safety Report 8334528-9 (Version None)
Quarter: 2012Q2

REPORT INFORMATION
  Report Type: 
  Country: None (occurrence: None)
  Receive Date: 20120503
  Receipt Date: 20120430
  Transmission Date: 20120825
  Serious: Yes (Hospitalization, Other)
  Sender: FDA-Public Use
  Company Number: GB-JNJFOC-20120407744

PATIENT
  Sex: Male

DRUGS (3)
  1. RISPERIDONE [Concomitant]
     Route: 065
     Dates: start: 20111101, end: 20111108
  2. PALIPERIDONE [Suspect]
     Indication: PSYCHOTIC DISORDER
     Dosage: SECOND INITIATION DOSE
     Route: 030
     Dates: start: 20120221
  3. RISPERIDONE [Concomitant]
     Route: 065
     Dates: start: 20111108, end: 20120206

REACTIONS (8)
  - SWOLLEN TONGUE [None]
  - HEADACHE [None]
  - RASH PRURITIC [None]
  - PRURITUS [None]
  - INFLUENZA LIKE ILLNESS [None]
  - NASOPHARYNGITIS [None]
  - DYSPNOEA [None]
  - CHILLS [None]
